FAERS Safety Report 6313278-4 (Version None)
Quarter: 2009Q3

REPORT INFORMATION
  Report Type: 
  Country: None (occurrence: None)
  Receive Date: 20090818
  Receipt Date: 20090811
  Transmission Date: 20100115
  Serious: Yes (Life-Threatening, Hospitalization, Other)
  Sender: FDA-Public Use
  Company Number: A0774615A

PATIENT
  Age: 26 Year
  Sex: Female

DRUGS (2)
  1. LAMICTAL [Suspect]
     Indication: BIPOLAR DISORDER
     Dosage: 50MG PER DAY
     Route: 048
     Dates: start: 20090121, end: 20090214
  2. DAILY MULTIVITAMIN [Concomitant]

REACTIONS (15)
  - ALANINE AMINOTRANSFERASE INCREASED [None]
  - ASPARTATE AMINOTRANSFERASE INCREASED [None]
  - BLOOD ALKALINE PHOSPHATASE INCREASED [None]
  - BLOOD BILIRUBIN INCREASED [None]
  - BLOOD LACTATE DEHYDROGENASE INCREASED [None]
  - BODY TEMPERATURE INCREASED [None]
  - CHAPPED LIPS [None]
  - DYSPNOEA [None]
  - ERYTHEMA [None]
  - GAMMA-GLUTAMYLTRANSFERASE INCREASED [None]
  - HEPATIC ENZYME INCREASED [None]
  - MUCOUS MEMBRANE DISORDER [None]
  - PRURITUS [None]
  - SKIN EXFOLIATION [None]
  - STEVENS-JOHNSON SYNDROME [None]
